FAERS Safety Report 18937692 (Version 3)
Quarter: 2021Q2

REPORT INFORMATION
  Report Type: Spontaneous
  Country: US (occurrence: US)
  Receive Date: 20210224
  Receipt Date: 20210407
  Transmission Date: 20210717
  Serious: Yes (Other)
  Sender: FDA-Public Use
  Company Number: US-PFIZER INC-2021201202

PATIENT
  Sex: Male

DRUGS (1)
  1. DILANTIN [Suspect]
     Active Substance: PHENYTOIN
     Dosage: 300 MG (100 MG IN MORNING AND 200 MG AT NIGHT)
     Route: 048

REACTIONS (5)
  - Aggression [Unknown]
  - Cerebellar atrophy [Unknown]
  - Asthenia [Unknown]
  - Memory impairment [Unknown]
  - Gait disturbance [Unknown]
